FAERS Safety Report 13917736 (Version 1)
Quarter: 2017Q3

REPORT INFORMATION
  Report Type: Spontaneous
  Country: US (occurrence: US)
  Receive Date: 20170829
  Receipt Date: 20170829
  Transmission Date: 20171127
  Serious: Yes (Other)
  Sender: FDA-Public Use
  Company Number: US-LPDUSPRD-20171189

PATIENT
  Age: 10 Year
  Sex: Male
  Weight: 30 kg

DRUGS (16)
  1. DEXTROSE SOLUTION (D5W) [Concomitant]
     Dosage: 175 ML (8.75 G DEXTROSE)
     Route: 042
  2. REMIFENTANIL [Concomitant]
     Active Substance: REMIFENTANIL
     Dosage: UNKNOWN
     Route: 042
  3. GLYCOPYRROLATE INJECTION, USP (4601-25) [Suspect]
     Active Substance: GLYCOPYRROLATE
     Dosage: 0.1 MG
     Route: 042
  4. DEXAMETHASONE. [Concomitant]
     Active Substance: DEXAMETHASONE
     Dosage: UNKNOWN
     Route: 065
  5. L-CARNITINE [Concomitant]
     Active Substance: LEVOCARNITINE
     Dosage: UNKNOWN DOSE DAILY
     Route: 065
  6. MIDAZOLAM [Concomitant]
     Active Substance: MIDAZOLAM HYDROCHLORIDE
     Dosage: TITRATED TO 4 MG
     Route: 042
  7. COENZYME Q10 [Concomitant]
     Active Substance: UBIDECARENONE
     Dosage: UNKNOWN DOSE DAILY
     Route: 065
  8. NORMAL SALINE [Concomitant]
     Active Substance: SODIUM CHLORIDE
     Dosage: 300 ML DURING ENTIRETY OF CASE
     Route: 042
  9. DEXMEDETOMIDINE. [Concomitant]
     Active Substance: DEXMEDETOMIDINE
     Dosage: 8 MICROGRAMS OVER 10 MINUTES
     Route: 042
  10. MEDIUM-CHAIN TRIGLYCERIDE OIL [Concomitant]
     Dosage: UNKNOWN DOSE DAILY
     Route: 065
  11. CELECOXIB. [Concomitant]
     Active Substance: CELECOXIB
     Dosage: 100 MG/D
     Route: 065
  12. LIDOCAINE HYDROCHLORIDE AND EPINEPHRINE BITARTRATE [Suspect]
     Active Substance: EPINEPHRINE BITARTRATE\LIDOCAINE HYDROCHLORIDE
     Dosage: 2.7 ML
     Route: 042
  13. ONDANSETRON [Concomitant]
     Active Substance: ONDANSETRON
     Dosage: UNKNOWN
     Route: 065
  14. OXYGEN. [Concomitant]
     Active Substance: OXYGEN
     Dosage: 2 L/MIN
     Route: 045
  15. DIPHENHYDRAMINE. [Concomitant]
     Active Substance: DIPHENHYDRAMINE
     Dosage: TITRATED TO 25 MG
     Route: 042
  16. KETAMINE [Suspect]
     Active Substance: KETAMINE
     Dosage: 10 TO 20 MG (TOTAL OF 50 MG)
     Route: 042

REACTIONS (2)
  - Sinoatrial block [Unknown]
  - Supraventricular tachycardia [Unknown]
